FAERS Safety Report 9671845 (Version 1)
Quarter: 2013Q4

REPORT INFORMATION
  Report Type: Spontaneous
  Country: US (occurrence: None)
  Receive Date: 20131105
  Receipt Date: 20131105
  Transmission Date: 20140711
  Serious: Yes (Life-Threatening, Hospitalization)
  Sender: FDA-Public Use
  Company Number: None

PATIENT
  Age: 83 Year
  Sex: Male
  Weight: 61.3 kg

DRUGS (1)
  1. ISOSULFAN BLUE [Suspect]
     Indication: SCAN WITH CONTRAST
     Dates: start: 20131029, end: 20131029

REACTIONS (3)
  - Oxygen saturation decreased [None]
  - Hypotension [None]
  - Shock [None]
